FAERS Safety Report 4338600-X (Version None)
Quarter: 2004Q2

REPORT INFORMATION
  Report Type: 
  Country: None (occurrence: None)
  Receive Date: 20040414
  Receipt Date: 20040408
  Transmission Date: 20050107
  Serious: Yes (Disabling)
  Sender: FDA-Public Use
  Company Number: US-MERCK-0404USA01044

PATIENT
  Age: 67 Year
  Sex: Female

DRUGS (3)
  1. FOSAMAX [Suspect]
     Indication: BONE DISORDER
     Route: 048
     Dates: start: 20031223
  2. CALTRATE [Concomitant]
     Route: 065
  3. MULTIVITAMIN [Concomitant]
     Route: 065

REACTIONS (5)
  - ARTHRALGIA [None]
  - BACK PAIN [None]
  - EYE PAIN [None]
  - GLOBAL AMNESIA [None]
  - HEADACHE [None]
